FAERS Safety Report 24686769 (Version 4)
Quarter: 2025Q1

REPORT INFORMATION
  Report Type: Report from Study
  Country: US (occurrence: US)
  Receive Date: 20241202
  Receipt Date: 20250108
  Transmission Date: 20250409
  Serious: Yes (Hospitalization, Other)
  Sender: ABBVIE
  Company Number: US-ABBVIE-5980597

PATIENT
  Age: 41 Year
  Sex: Female
  Weight: 85.728 kg

DRUGS (5)
  1. HUMIRA [Suspect]
     Active Substance: ADALIMUMAB
     Indication: Hidradenitis
     Dosage: FORM STRENGTH: 80 MILLIGRAM
     Route: 058
     Dates: start: 202408, end: 202410
  2. HUMIRA [Suspect]
     Active Substance: ADALIMUMAB
     Indication: Crohn^s disease
     Dosage: FORM STRENGTH: 80 MILLIGRAM
     Route: 058
     Dates: start: 202411, end: 202411
  3. HUMIRA [Suspect]
     Active Substance: ADALIMUMAB
     Indication: Colitis ulcerative
  4. NAPROXEN [Concomitant]
     Active Substance: NAPROXEN
     Indication: Product used for unknown indication
  5. XANAX [Concomitant]
     Active Substance: ALPRAZOLAM
     Indication: Anxiety

REACTIONS (40)
  - Frequent bowel movements [Not Recovered/Not Resolved]
  - Mania [Not Recovered/Not Resolved]
  - Disturbance in attention [Unknown]
  - Seizure [Recovering/Resolving]
  - Abdominal discomfort [Recovered/Resolved with Sequelae]
  - Brain fog [Not Recovered/Not Resolved]
  - Headache [Unknown]
  - Constipation [Recovering/Resolving]
  - Gastrointestinal injury [Not Recovered/Not Resolved]
  - Haemorrhage [Recovering/Resolving]
  - Mental disorder [Not Recovered/Not Resolved]
  - Retching [Unknown]
  - Abdominal distension [Recovering/Resolving]
  - Furuncle [Unknown]
  - Hidradenitis [Unknown]
  - Anger [Unknown]
  - Abdominal pain upper [Not Recovered/Not Resolved]
  - Cyst [Recovered/Resolved]
  - Anxiety [Recovering/Resolving]
  - Feeling abnormal [Unknown]
  - Sleep terror [Unknown]
  - Nightmare [Unknown]
  - Vomiting [Not Recovered/Not Resolved]
  - Ulcer [Not Recovered/Not Resolved]
  - Rash [Unknown]
  - Staphylococcal infection [Unknown]
  - Gait disturbance [Unknown]
  - Wound complication [Unknown]
  - Fatigue [Unknown]
  - Hiatus hernia [Not Recovered/Not Resolved]
  - Pyrexia [Unknown]
  - Arthralgia [Not Recovered/Not Resolved]
  - Hyperhidrosis [Unknown]
  - Delusion [Recovering/Resolving]
  - Chills [Unknown]
  - Myalgia [Unknown]
  - Enuresis [Recovering/Resolving]
  - Cough [Unknown]
  - Gastrointestinal infection [Not Recovered/Not Resolved]
  - Dyspnoea [Unknown]

NARRATIVE: CASE EVENT DATE: 20240101
